FAERS Safety Report 17977351 (Version 1)
Quarter: 2020Q3

REPORT INFORMATION
  Report Type: Spontaneous
  Country: CN (occurrence: CN)
  Receive Date: 20200702
  Receipt Date: 20200702
  Transmission Date: 20201103
  Serious: Yes (Death, Other)
  Sender: FDA-Public Use
  Company Number: CN-ROCHE-2634421

PATIENT
  Age: 68 Year
  Sex: Male

DRUGS (17)
  1. CAPECITABINE. [Suspect]
     Active Substance: CAPECITABINE
     Indication: RECTAL CANCER METASTATIC
     Dosage: NOT COMPANY DRUG
     Route: 065
     Dates: start: 20160115
  2. AVASTIN [Suspect]
     Active Substance: BEVACIZUMAB
     Route: 041
     Dates: start: 20160115
  3. 5?FLUOROURACIL [FLUOROURACIL] [Suspect]
     Active Substance: FLUOROURACIL
     Indication: RECTAL CANCER METASTATIC
     Route: 065
     Dates: start: 20140904
  4. AVASTIN [Suspect]
     Active Substance: BEVACIZUMAB
     Route: 041
     Dates: start: 20150821
  5. RALTITREXED [Suspect]
     Active Substance: RALTITREXED
     Route: 065
     Dates: start: 20150821
  6. OXALIPLATIN. [Suspect]
     Active Substance: OXALIPLATIN
     Indication: RECTAL CANCER METASTATIC
     Route: 065
     Dates: start: 20150508
  7. OXALIPLATIN. [Suspect]
     Active Substance: OXALIPLATIN
     Route: 065
     Dates: start: 20150821
  8. CALCIUM FOLINATE [Suspect]
     Active Substance: LEUCOVORIN CALCIUM
     Indication: RECTAL CANCER METASTATIC
     Route: 065
     Dates: start: 20140904
  9. APATINIB [Suspect]
     Active Substance: APATINIB
     Route: 065
  10. RALTITREXED [Suspect]
     Active Substance: RALTITREXED
     Indication: RECTAL CANCER METASTATIC
     Route: 065
     Dates: start: 20140904
  11. RALTITREXED [Suspect]
     Active Substance: RALTITREXED
     Route: 065
     Dates: start: 20150508
  12. APATINIB [Suspect]
     Active Substance: APATINIB
     Indication: RECTAL CANCER METASTATIC
     Route: 065
  13. AVASTIN [Suspect]
     Active Substance: BEVACIZUMAB
     Indication: RECTAL CANCER METASTATIC
     Route: 041
     Dates: start: 20150508
  14. GIMERACIL;OTERACIL POTASSIUM;TEGAFUR [Suspect]
     Active Substance: GIMERACIL\OTERACIL\TEGAFUR
     Route: 065
  15. REGORAFENIB. [Concomitant]
     Active Substance: REGORAFENIB
     Indication: RECTAL CANCER METASTATIC
     Route: 048
     Dates: start: 20180201
  16. IRINOTECAN [Suspect]
     Active Substance: IRINOTECAN
     Indication: RECTAL CANCER METASTATIC
     Route: 065
     Dates: start: 20140904
  17. GIMERACIL;OTERACIL POTASSIUM;TEGAFUR [Suspect]
     Active Substance: GIMERACIL\OTERACIL\TEGAFUR
     Indication: RECTAL CANCER METASTATIC
     Route: 065

REACTIONS (6)
  - Anaemia [Unknown]
  - Proteinuria [Unknown]
  - Granulocyte count decreased [Unknown]
  - Neurotoxicity [Unknown]
  - Palmar-plantar erythrodysaesthesia syndrome [Unknown]
  - Platelet count decreased [Unknown]
